FAERS Safety Report 6240661-8 (Version None)
Quarter: 2009Q2

REPORT INFORMATION
  Report Type: 
  Country: None (occurrence: None)
  Receive Date: 20090623
  Receipt Date: 20081209
  Transmission Date: 20091009
  Serious: No
  Sender: FDA-Public Use
  Company Number: US-ASTRAZENECA-2008UW27323

PATIENT
  Sex: Male

DRUGS (3)
  1. PULMICORT RESPULES [Suspect]
     Dosage: 0.25 MG
     Route: 055
     Dates: start: 20081208
  2. IPRATROPIUM BROMIDE [Concomitant]
     Dosage: DAILY
  3. ALBUTEROL [Concomitant]
     Dosage: DAILY

REACTIONS (1)
  - INCREASED UPPER AIRWAY SECRETION [None]
